FAERS Safety Report 5008132-4 (Version None)
Quarter: 2006Q2

REPORT INFORMATION
  Report Type: 
  Country: None (occurrence: None)
  Receive Date: 20060517
  Receipt Date: 20060510
  Transmission Date: 20061013
  Serious: Yes (Congenital Anomaly, Other)
  Sender: FDA-Public Use
  Company Number: 2006059913

PATIENT
  Age: 10 Year
  Sex: Female
  Weight: 30 kg

DRUGS (1)
  1. DILANTIN [Suspect]
     Indication: EPILEPSY
     Dosage: 200 MG, ORAL
     Route: 048
     Dates: start: 19770227, end: 19780204

REACTIONS (7)
  - ANOREXIA [None]
  - HEPATOSPLENOMEGALY [None]
  - LYMPHADENOPATHY [None]
  - OEDEMA PERIPHERAL [None]
  - RASH ERYTHEMATOUS [None]
  - RASH MACULO-PAPULAR [None]
  - SOMNOLENCE [None]
